FAERS Safety Report 5189704-3 (Version None)
Quarter: 2006Q4

REPORT INFORMATION
  Report Type: 
  Country: None (occurrence: None)
  Receive Date: 20061221
  Receipt Date: 20050805
  Transmission Date: 20070319
  Serious: No
  Sender: FDA-Public Use
  Company Number: US-AMGEN-US145526

PATIENT
  Sex: Female

DRUGS (2)
  1. ENBREL [Suspect]
     Indication: PSORIASIS
     Route: 058
     Dates: start: 20040630, end: 20050618
  2. ORAL CONTRACEPTIVE NOS [Concomitant]
     Route: 048
     Dates: start: 20030101

REACTIONS (1)
  - HYPOAESTHESIA [None]
